FAERS Safety Report 8537168-1 (Version None)
Quarter: 2012Q3

REPORT INFORMATION
  Report Type: 
  Country: None (occurrence: None)
  Receive Date: 20120725
  Receipt Date: 20120717
  Transmission Date: 20120928
  Serious: Yes (Other)
  Sender: FDA-Public Use
  Company Number: NZ-BRISTOL-MYERS SQUIBB COMPANY-16785172

PATIENT
  Age: 39 Year
  Sex: Male

DRUGS (3)
  1. ABILIFY [Suspect]
  2. OLANZAPINE [Suspect]
     Dosage: 1DF: 15 MG TABLET
  3. LITHIUM CARBONATE [Suspect]

REACTIONS (4)
  - MANIA [None]
  - DIABETES MELLITUS [None]
  - SOMNOLENCE [None]
  - WEIGHT INCREASED [None]
